FAERS Safety Report 22080687 (Version 2)
Quarter: 2023Q1

REPORT INFORMATION
  Report Type: Report from Study
  Country: US (occurrence: US)
  Receive Date: 20230309
  Receipt Date: 20230312
  Transmission Date: 20230417
  Serious: No
  Sender: FDA-Public Use
  Company Number: US-002147023-NVSC2023US054192

PATIENT
  Age: 80 Year
  Sex: Female

DRUGS (1)
  1. ENTRESTO [Suspect]
     Active Substance: SACUBITRIL\VALSARTAN
     Indication: Left ventricular failure
     Dosage: 0.5 DOSAGE FORM, BID (24 MG)
     Route: 048
     Dates: start: 20220307

REACTIONS (3)
  - Hypotension [Unknown]
  - Wrong technique in product usage process [Unknown]
  - Underdose [Unknown]

NARRATIVE: CASE EVENT DATE: 20220307
